FAERS Safety Report 15531715 (Version 1)
Quarter: 2018Q4

REPORT INFORMATION
  Report Type: Spontaneous
  Country: FR (occurrence: FR)
  Receive Date: 20181019
  Receipt Date: 20181019
  Transmission Date: 20190205
  Serious: Yes (Hospitalization)
  Sender: FDA-Public Use
  Company Number: FR-TEVA-788413ROM

PATIENT
  Sex: Male

DRUGS (5)
  1. SORIATANE [Suspect]
     Active Substance: ACITRETIN
     Dosage: UP TO 55 MG DAILY
     Route: 048
     Dates: start: 201608
  2. SORIATANE [Suspect]
     Active Substance: ACITRETIN
     Route: 048
     Dates: end: 201609
  3. DIPROLENE [Suspect]
     Active Substance: BETAMETHASONE DIPROPIONATE
     Indication: PSORIASIS
     Route: 061
  4. SORIATANE [Suspect]
     Active Substance: ACITRETIN
     Indication: PSORIASIS
     Dosage: 10 MILLIGRAM DAILY;
     Route: 048
     Dates: start: 201604
  5. STELARA [Suspect]
     Active Substance: USTEKINUMAB
     Indication: PSORIASIS
     Route: 058
     Dates: start: 201604

REACTIONS (1)
  - Major depression [Recovering/Resolving]
